FAERS Safety Report 17554848 (Version 1)
Quarter: 2020Q1

REPORT INFORMATION
  Report Type: Spontaneous
  Country: US (occurrence: US)
  Receive Date: 20200318
  Receipt Date: 20200318
  Transmission Date: 20200409
  Serious: No
  Sender: FDA-Public Use
  Company Number: US-PFIZER INC-2020113002

PATIENT
  Age: 53 Year
  Sex: Female

DRUGS (1)
  1. XELJANZ XR [Suspect]
     Active Substance: TOFACITINIB CITRATE
     Indication: PSORIATIC ARTHROPATHY
     Dosage: 11 MG, DAILY
     Route: 048
     Dates: start: 20191220

REACTIONS (6)
  - Diarrhoea [Recovered/Resolved]
  - Nausea [Recovered/Resolved]
  - Influenza [Unknown]
  - Pyrexia [Recovered/Resolved]
  - Headache [Recovered/Resolved]
  - Increased appetite [Unknown]

NARRATIVE: CASE EVENT DATE: 2020
